FAERS Safety Report 17428520 (Version 1)
Quarter: 2020Q1

REPORT INFORMATION
  Report Type: Spontaneous
  Country: GB (occurrence: GB)
  Receive Date: 20200218
  Receipt Date: 20200218
  Transmission Date: 20200409
  Serious: Yes (Other)
  Sender: FDA-Public Use
  Company Number: GB-MYLANLABS-2020M1013468

PATIENT
  Sex: Male

DRUGS (2)
  1. CLOZARIL [Suspect]
     Active Substance: CLOZAPINE
     Indication: SCHIZOPHRENIA
     Dosage: UNK
     Route: 048
     Dates: start: 20190304
  2. CLOZARIL [Suspect]
     Active Substance: CLOZAPINE
     Dosage: UNK
     Route: 048
     Dates: end: 202002

REACTIONS (9)
  - Eating disorder [Unknown]
  - Paranoia [Unknown]
  - Vomiting [Unknown]
  - Overdose [Unknown]
  - Insomnia [Unknown]
  - Anxiety [Unknown]
  - Hypertension [Unknown]
  - Constipation [Unknown]
  - Heart rate increased [Unknown]
